FAERS Safety Report 9441026 (Version 3)
Quarter: 2013Q4

REPORT INFORMATION
  Report Type: Report from Study
  Country: US (occurrence: US)
  Receive Date: 20130805
  Receipt Date: 20131004
  Transmission Date: 20140711
  Serious: Yes (Hospitalization)
  Sender: FDA-Public Use
  Company Number: US-ROCHE-1254708

PATIENT
  Age: 70 Year
  Sex: Female

DRUGS (2)
  1. VEMURAFENIB [Suspect]
     Indication: MALIGNANT MELANOMA
     Dosage: ON 06/JUN/2013, SHE RECEIVED MOST RECENT DOSE OF VEMURAFENIB
     Route: 048
     Dates: start: 20130529
  2. VEMURAFENIB [Suspect]
     Route: 048
     Dates: start: 20130613

REACTIONS (3)
  - Blood creatinine increased [Recovered/Resolved]
  - Renal failure acute [Recovered/Resolved]
  - Urinary tract infection [Recovered/Resolved]
